FAERS Safety Report 16152302 (Version 4)
Quarter: 2019Q3

REPORT INFORMATION
  Report Type: Report from Study
  Country: CA (occurrence: CA)
  Receive Date: 20190403
  Receipt Date: 20190802
  Transmission Date: 20191004
  Serious: Yes (Other)
  Sender: FDA-Public Use
  Company Number: PHHY2018CA198710

PATIENT
  Age: 59 Year
  Sex: Female

DRUGS (2)
  1. KISQALI [Suspect]
     Active Substance: RIBOCICLIB
     Indication: BREAST CANCER METASTATIC
     Dosage: UNK
     Route: 048
     Dates: start: 20181123, end: 20190729
  2. LETROZOLE SANDOZ [Suspect]
     Active Substance: LETROZOLE
     Indication: PRODUCT USED FOR UNKNOWN INDICATION
     Dosage: UNK
     Route: 065
     Dates: start: 2015

REACTIONS (14)
  - Sputum discoloured [Unknown]
  - Nausea [Recovering/Resolving]
  - Breast cancer metastatic [Unknown]
  - Metastases to pelvis [Unknown]
  - Metastases to lymph nodes [Recovering/Resolving]
  - Myalgia [Unknown]
  - Malaise [Unknown]
  - Oropharyngeal pain [Unknown]
  - Platelet count decreased [Unknown]
  - White blood cell count decreased [Unknown]
  - Malignant neoplasm progression [Unknown]
  - Metastases to neck [Recovering/Resolving]
  - Neutrophil count decreased [Unknown]
  - Productive cough [Unknown]

NARRATIVE: CASE EVENT DATE: 20181227
